FAERS Safety Report 25616283 (Version 2)
Quarter: 2025Q3

REPORT INFORMATION
  Report Type: Spontaneous
  Country: CA (occurrence: CA)
  Receive Date: 20250729
  Receipt Date: 20250819
  Transmission Date: 20251021
  Serious: Yes (Other)
  Sender: TEVA
  Company Number: CA-TEVA-VS-3356330

PATIENT
  Age: 50 Year
  Sex: Female

DRUGS (3)
  1. VENLAFAXINE [Suspect]
     Active Substance: VENLAFAXINE HYDROCHLORIDE
     Indication: Major depression
     Route: 065
  2. DOMPERIDONE [Interacting]
     Active Substance: DOMPERIDONE
     Indication: Nausea
     Route: 065
     Dates: start: 2024, end: 2024
  3. DESVENLAFAXINE [Interacting]
     Active Substance: DESVENLAFAXINE
     Indication: Major depression
     Route: 065

REACTIONS (6)
  - Electric shock sensation [Recovered/Resolved]
  - Hyperarousal [Unknown]
  - Insomnia [Unknown]
  - Headache [Unknown]
  - Anxiety [Unknown]
  - Drug interaction [Unknown]

NARRATIVE: CASE EVENT DATE: 20240101
